FAERS Safety Report 5779057-1 (Version None)
Quarter: 2008Q2

REPORT INFORMATION
  Report Type: 
  Country: None (occurrence: None)
  Receive Date: 20080613
  Receipt Date: 20071017
  Transmission Date: 20081010
  Serious: Yes (Other)
  Sender: FDA-Public Use
  Company Number: PHEH2007US13427

PATIENT
  Sex: Male

DRUGS (2)
  1. EXELON [Suspect]
     Dosage: ORAL
     Route: 048
  2. EXELON [Suspect]
     Dosage: TRANSDERMAL
     Route: 062

REACTIONS (1)
  - CONFUSIONAL STATE [None]
